FAERS Safety Report 6408287-0 (Version None)
Quarter: 2009Q4

REPORT INFORMATION
  Report Type: 
  Country: None (occurrence: None)
  Receive Date: 20091021
  Receipt Date: 20091009
  Transmission Date: 20100525
  Serious: Yes (Other)
  Sender: FDA-Public Use
  Company Number: DE-PFIZER INC-2009280987

PATIENT

DRUGS (1)
  1. ZITHROMAX [Suspect]

REACTIONS (2)
  - DELIRIUM [None]
  - PSYCHIATRIC DECOMPENSATION [None]
